FAERS Safety Report 6575329-1 (Version None)
Quarter: 2010Q1

REPORT INFORMATION
  Report Type: 
  Country: None (occurrence: None)
  Receive Date: 20100208
  Receipt Date: 20100208
  Transmission Date: 20100710
  Serious: No
  Sender: FDA-Public Use
  Company Number: None

PATIENT
  Age: 74 Year
  Sex: Female
  Weight: 56.6996 kg

DRUGS (1)
  1. CHOLESTYRAMINE [Suspect]
     Indication: GASTROINTESTINAL DISORDER
     Dosage: 4 GRAM SCOOPFUL BEDTIME
     Dates: start: 20091012, end: 20091120

REACTIONS (5)
  - BURNING SENSATION [None]
  - GLOSSITIS [None]
  - OEDEMA MOUTH [None]
  - STOMATITIS [None]
  - SWOLLEN TONGUE [None]
